FAERS Safety Report 9839067 (Version 1)
Quarter: 2014Q1

REPORT INFORMATION
  Report Type: Spontaneous
  Country: IR (occurrence: IR)
  Receive Date: 20140123
  Receipt Date: 20140123
  Transmission Date: 20141002
  Serious: Yes (Hospitalization)
  Sender: FDA-Public Use
  Company Number: PHHY2014IR005075

PATIENT
  Age: 32 Year
  Sex: Male

DRUGS (8)
  1. ZOLPIDEM [Suspect]
     Dosage: 100 DF, UNK
  2. ZOLPIDEM [Suspect]
     Dosage: 110-140; 10 MG TABLETS OF ZOLPIDEM (1100-1400 MG)
  3. ZOLPIDEM [Suspect]
     Dosage: 200 ZOLPIDEM 10 MG TABLETS
  4. ZOLPIDEM [Suspect]
     Dosage: 10 MG, UNK
  5. ZOLPIDEM [Suspect]
     Dosage: 1000 MG, UNK
  6. ZOLPIDEM [Suspect]
     Dosage: 400 MG, UNK
  7. DIPHENOXYLATE [Suspect]
     Dosage: 40 DF, UNK
  8. DIPHENOXYLATE [Suspect]
     Dosage: 120 TABLETS OF DIPHENOXYLATE WITHIN 6 MONTHS

REACTIONS (15)
  - Rhinorrhoea [Unknown]
  - Diarrhoea [Unknown]
  - Myalgia [Unknown]
  - Tic [Unknown]
  - Euphoric mood [Unknown]
  - Convulsion [Unknown]
  - Restlessness [Unknown]
  - Irritability [Unknown]
  - Muscle spasms [Unknown]
  - Hyperhidrosis [Unknown]
  - Palpitations [Unknown]
  - Insomnia [Unknown]
  - Drug abuse [Unknown]
  - Drug dependence [Unknown]
  - Drug withdrawal syndrome [Unknown]
